FAERS Safety Report 13798420 (Version 2)
Quarter: 2017Q3

REPORT INFORMATION
  Report Type: Spontaneous
  Country: US (occurrence: US)
  Receive Date: 20170727
  Receipt Date: 20170801
  Transmission Date: 20171127
  Serious: No
  Sender: FDA-Public Use
  Company Number: US-009507513-1707USA007144

PATIENT
  Sex: Male

DRUGS (1)
  1. INTRON A [Suspect]
     Active Substance: INTERFERON ALFA-2B
     Indication: MYCOSIS FUNGOIDES
     Dosage: UNK UNK, Q3W

REACTIONS (4)
  - Insomnia [Unknown]
  - Balance disorder [Unknown]
  - Influenza like illness [Unknown]
  - Hypoaesthesia [Unknown]
